FAERS Safety Report 5445167-1 (Version None)
Quarter: 2007Q3

REPORT INFORMATION
  Report Type: 
  Country: None (occurrence: None)
  Receive Date: 20070730
  Receipt Date: 20070508
  Transmission Date: 20080115
  Serious: Yes (Hospitalization)
  Sender: FDA-Public Use
  Company Number: 239456

PATIENT
  Age: 59 Year
  Sex: Male

DRUGS (4)
  1. RITUXAN [Suspect]
     Indication: RHEUMATOID ARTHRITIS
     Dosage: 1000 MG, DAYS 1 + 15, INTRAVENOUS
     Route: 042
     Dates: start: 20070327
  2. PREDNISONE TAB [Concomitant]
  3. DILTIAZEM HCL [Concomitant]
  4. HUMIRA [Concomitant]

REACTIONS (3)
  - HYPOAESTHESIA [None]
  - PARAESTHESIA [None]
  - SINUSITIS [None]
